FAERS Safety Report 19002970 (Version 1)
Quarter: 2021Q1

REPORT INFORMATION
  Report Type: Spontaneous
  Country: GB (occurrence: GB)
  Receive Date: 20210312
  Receipt Date: 20210312
  Transmission Date: 20210420
  Serious: Yes (Other)
  Sender: FDA-Public Use
  Company Number: GB-TEVA-2021-GB-1887015

PATIENT
  Age: 56 Year
  Sex: Female
  Weight: 86.63 kg

DRUGS (3)
  1. CLARITHROMYCIN. [Suspect]
     Active Substance: CLARITHROMYCIN
     Indication: LOWER RESPIRATORY TRACT INFECTION
     Dosage: 1000 MILLIGRAM DAILY; 2 X  500MG TABLETS A DAY
     Route: 048
     Dates: start: 20210218, end: 20210224
  2. PREDNISONE. [Suspect]
     Active Substance: PREDNISONE
     Indication: LOWER RESPIRATORY TRACT INFECTION
     Dosage: 30 MILLIGRAM DAILY; 6  X 5MG TABLETS A DAY
     Route: 048
     Dates: start: 20210218, end: 20210223
  3. INSULIN [Concomitant]
     Active Substance: INSULIN NOS
     Indication: ILL-DEFINED DISORDER

REACTIONS (5)
  - Head discomfort [Recovering/Resolving]
  - Headache [Not Recovered/Not Resolved]
  - Insomnia [Not Recovered/Not Resolved]
  - Abdominal discomfort [Recovering/Resolving]
  - Feeling abnormal [Not Recovered/Not Resolved]

NARRATIVE: CASE EVENT DATE: 20210220
